FAERS Safety Report 10330318 (Version 1)
Quarter: 2014Q3

REPORT INFORMATION
  Report Type: Spontaneous
  Country: TR (occurrence: TR)
  Receive Date: 20140722
  Receipt Date: 20140722
  Transmission Date: 20150326
  Serious: Yes (Hospitalization)
  Sender: FDA-Public Use
  Company Number: PHHY2014TR087096

PATIENT
  Age: 23 Year
  Sex: Male

DRUGS (2)
  1. TRAZODONE [Suspect]
     Active Substance: TRAZODONE HYDROCHLORIDE
     Indication: INSOMNIA
     Dosage: 100 MG, UNK
  2. BUPROPION [Concomitant]
     Active Substance: BUPROPION
     Indication: INSOMNIA
     Dosage: 150 MG, UNK

REACTIONS (5)
  - Anxiety [Recovered/Resolved]
  - Pyrexia [Recovered/Resolved]
  - Muscle contractions involuntary [Recovered/Resolved]
  - Stress [Recovered/Resolved]
  - Dystonia [Recovered/Resolved]
